FAERS Safety Report 18566241 (Version 2)
Quarter: 2020Q4

REPORT INFORMATION
  Report Type: Spontaneous
  Country: GB (occurrence: GB)
  Receive Date: 20201201
  Receipt Date: 20201223
  Transmission Date: 20210114
  Serious: Yes (Other)
  Sender: FDA-Public Use
  Company Number: GB-TEVA-2020-GB-1853792

PATIENT
  Age: 28 Year
  Sex: Female

DRUGS (4)
  1. BLEOMYCIN [Suspect]
     Active Substance: BLEOMYCIN SULFATE
     Indication: HODGKIN^S DISEASE
     Dosage: 2 CYCLES, PART OF ABVD CHEMOTHERAPY
     Route: 065
  2. DACARBAZINE. [Suspect]
     Active Substance: DACARBAZINE
     Indication: HODGKIN^S DISEASE
     Dosage: 2 CYCLES, PART OF ABVD CHEMOTHERAPY
     Route: 065
  3. VINBLASTINE [Suspect]
     Active Substance: VINBLASTINE
     Indication: HODGKIN^S DISEASE
     Dosage: 2 CYCLES, PART OF ABVD CHEMOTHERAPY
     Route: 065
  4. DOXORUBICIN [Suspect]
     Active Substance: DOXORUBICIN
     Indication: HODGKIN^S DISEASE
     Dosage: 2 CYCLES, PART OF ABVD CHEMOTHERAPY
     Route: 065

REACTIONS (3)
  - Ileal stenosis [Recovering/Resolving]
  - Intestinal obstruction [Recovering/Resolving]
  - Colitis [Recovering/Resolving]
